FAERS Safety Report 4654249-3 (Version None)
Quarter: 2005Q2

REPORT INFORMATION
  Report Type: 
  Country: None (occurrence: None)
  Receive Date: 20050505
  Receipt Date: 20050425
  Transmission Date: 20051028
  Serious: Yes (Death, Life-Threatening)
  Sender: FDA-Public Use
  Company Number: US-MERCK-0504USA04399

PATIENT
  Age: 64 Year
  Sex: Male

DRUGS (1)
  1. PRINZIDE [Suspect]
     Indication: HYPERTENSION
     Route: 048
     Dates: start: 20000501, end: 20010501

REACTIONS (4)
  - ANAPHYLACTOID REACTION [None]
  - ANGIONEUROTIC OEDEMA [None]
  - CERUMEN IMPACTION [None]
  - GENERAL PHYSICAL HEALTH DETERIORATION [None]
